FAERS Safety Report 5511938-6 (Version None)
Quarter: 2007Q4

REPORT INFORMATION
  Report Type: 
  Country: None (occurrence: None)
  Receive Date: 20071109
  Receipt Date: 20071030
  Transmission Date: 20080405
  Serious: Yes (Death)
  Sender: FDA-Public Use
  Company Number: US-PFIZER INC-2007092383

PATIENT
  Age: 3 Year
  Sex: Male

DRUGS (1)
  1. ARGININE HYDROCHLORIDE [Suspect]
     Indication: BODY HEIGHT BELOW NORMAL
     Dosage: DAILY DOSE:60GRAM

REACTIONS (2)
  - ACCIDENTAL OVERDOSE [None]
  - DEATH [None]
